FAERS Safety Report 12137584 (Version 19)
Quarter: 2019Q1

REPORT INFORMATION
  Report Type: Spontaneous
  Country: US (occurrence: US)
  Receive Date: 20160302
  Receipt Date: 20190305
  Transmission Date: 20190417
  Serious: Yes (Hospitalization, Other)
  Sender: FDA-Public Use
  Company Number: US-ACTELION-A-NJ2015-114423

PATIENT
  Sex: Female
  Weight: 49.89 kg

DRUGS (7)
  1. OPSUMIT [Suspect]
     Active Substance: MACITENTAN
     Dosage: 10 MG, QD
     Route: 048
  2. OPSUMIT [Suspect]
     Active Substance: MACITENTAN
     Indication: PULMONARY ARTERIAL HYPERTENSION
     Dosage: 10 MG, QD
     Route: 048
     Dates: start: 20140918
  3. VELETRI [Suspect]
     Active Substance: EPOPROSTENOL
     Indication: PULMONARY ARTERIAL HYPERTENSION
     Dosage: 49 NG/KG, PER MIN
     Route: 042
  4. COUMADIN [Concomitant]
     Active Substance: WARFARIN SODIUM
  5. VELETRI [Suspect]
     Active Substance: EPOPROSTENOL
     Dosage: 35 NG/KG, PER MIN
     Route: 042
     Dates: start: 20121205
  6. VELETRI [Suspect]
     Active Substance: EPOPROSTENOL
     Dosage: 45 NG/KG, PER MIN
     Route: 042
  7. REVATIO [Concomitant]
     Active Substance: SILDENAFIL CITRATE

REACTIONS (22)
  - Transplant evaluation [Unknown]
  - Dyspnoea [Unknown]
  - Fluid retention [Unknown]
  - Asthenia [Unknown]
  - Lung disorder [Unknown]
  - Pericardial effusion [Unknown]
  - Cerebrovascular accident [Unknown]
  - Abdominal distension [Unknown]
  - Blood count abnormal [Unknown]
  - Device alarm issue [Unknown]
  - Haemorrhage [Unknown]
  - Pulmonary arterial hypertension [Unknown]
  - Chest discomfort [Unknown]
  - Abdominal pain [Unknown]
  - Abdominal pain upper [Unknown]
  - Dyspnoea exertional [Unknown]
  - Device dislocation [Unknown]
  - Condition aggravated [Unknown]
  - Blood pressure decreased [Unknown]
  - Fluid overload [Unknown]
  - Oxygen saturation decreased [Unknown]
  - Surgery [Unknown]
